FAERS Safety Report 26070200 (Version 1)
Quarter: 2025Q4

REPORT INFORMATION
  Report Type: Spontaneous
  Country: US (occurrence: US)
  Receive Date: 20251120
  Receipt Date: 20251120
  Transmission Date: 20260117
  Serious: No
  Sender: Kenvue
  Company Number: US-KENVUE-20251104956

PATIENT
  Age: 47 Year
  Sex: Female

DRUGS (4)
  1. ZYRTEC [Suspect]
     Active Substance: CETIRIZINE HYDROCHLORIDE
     Indication: Premedication
     Dosage: WITH NEXT INFUSIONS, HAD ZYRTEC PRIOR TO THEM
     Route: 065
  2. BENADRYL [Concomitant]
     Active Substance: DIPHENHYDRAMINE HYDROCHLORIDE
     Indication: Premedication
     Dosage: UNK
     Route: 065
  3. BRIUMVI [Concomitant]
     Active Substance: UBLITUXIMAB-XIIY
     Indication: Relapsing multiple sclerosis
     Dosage: UNK
  4. BRIUMVI [Concomitant]
     Active Substance: UBLITUXIMAB-XIIY
     Dosage: 2 BRIUMVI (DOSE NOT REPORTED) IV INFUSIONS, ON AN UNSPECIFIED DATE

REACTIONS (1)
  - Off label use [Unknown]
